FAERS Safety Report 14288989 (Version 2)
Quarter: 2017Q4

REPORT INFORMATION
  Report Type: Spontaneous
  Country: US (occurrence: US)
  Receive Date: 20171215
  Receipt Date: 20171225
  Transmission Date: 20180321
  Serious: Yes (Life-Threatening, Hospitalization, Other)
  Sender: FDA-Public Use
  Company Number: US-AUROBINDO-AUR-APL-2017-45376

PATIENT
  Age: 56 Year
  Sex: Female

DRUGS (1)
  1. METFORMIN [Suspect]
     Active Substance: METFORMIN HYDROCHLORIDE
     Indication: PRODUCT USED FOR UNKNOWN INDICATION
     Dosage: 1000 MG, TWO TIMES A DAY

REACTIONS (11)
  - Leukocytosis [Recovering/Resolving]
  - Lactic acidosis [Recovering/Resolving]
  - Diarrhoea [Recovering/Resolving]
  - Abdominal pain [Recovering/Resolving]
  - Acute kidney injury [Recovering/Resolving]
  - Toxicity to various agents [Recovering/Resolving]
  - Hypotension [Recovering/Resolving]
  - Lethargy [Recovering/Resolving]
  - Vomiting [Recovering/Resolving]
  - Hypothermia [Recovering/Resolving]
  - Blood creatinine increased [Recovering/Resolving]
